FAERS Safety Report 19157025 (Version 3)
Quarter: 2021Q4

REPORT INFORMATION
  Report Type: Spontaneous
  Country: GB (occurrence: GB)
  Receive Date: 20210420
  Receipt Date: 20211117
  Transmission Date: 20220303
  Serious: Yes (Other)
  Sender: FDA-Public Use
  Company Number: GB-ABBVIE-21K-167-3849662-00

PATIENT
  Sex: Female

DRUGS (2)
  1. ADALIMUMAB [Suspect]
     Active Substance: ADALIMUMAB
     Indication: Product used for unknown indication
     Dosage: UNK
     Route: 058
  2. HUMIRA [Suspect]
     Active Substance: ADALIMUMAB
     Indication: Psoriatic arthropathy
     Dosage: 40 MILLIGRAM, Q2WK
     Route: 058

REACTIONS (11)
  - Psoriatic arthropathy [Recovering/Resolving]
  - Hypophagia [Unknown]
  - Skin fissures [Unknown]
  - Loss of personal independence in daily activities [Unknown]
  - Mobility decreased [Recovering/Resolving]
  - Pain [Unknown]
  - Sleep disorder [Unknown]
  - Wound complication [Unknown]
  - Arthralgia [Recovering/Resolving]
  - Pain in extremity [Unknown]
  - Psoriasis [Unknown]
